FAERS Safety Report 7247165-4 (Version None)
Quarter: 2011Q1

REPORT INFORMATION
  Report Type: 
  Country: None (occurrence: None)
  Receive Date: 20110127
  Receipt Date: 20110113
  Transmission Date: 20110831
  Serious: Yes (Hospitalization)
  Sender: FDA-Public Use
  Company Number: ES-CELGENEUS-144-50794-11011259

PATIENT
  Age: 75 Year
  Sex: Female

DRUGS (12)
  1. LORAZEPAM [Concomitant]
     Route: 048
  2. VIDAZA [Suspect]
     Route: 058
     Dates: start: 20101211
  3. DOXIUM [Concomitant]
     Route: 065
  4. SUTRIL [Concomitant]
     Route: 065
  5. ALENDRONIC ACID [Concomitant]
     Route: 065
  6. PARACETAMOL [Concomitant]
     Route: 065
  7. PLAVIX [Concomitant]
     Route: 065
  8. DITROPAN [Concomitant]
     Route: 065
  9. CODIOVAN [Concomitant]
     Route: 065
  10. ALLOPURINOL [Concomitant]
     Route: 065
  11. SOMAZINE [Concomitant]
     Route: 065
  12. ATORVASTATIN CALCIUM [Concomitant]
     Route: 065

REACTIONS (1)
  - HEPATITIS CHOLESTATIC [None]
